FAERS Safety Report 5297857-1 (Version None)
Quarter: 2007Q2

REPORT INFORMATION
  Report Type: 
  Country: None (occurrence: None)
  Receive Date: 20070416
  Receipt Date: 20070404
  Transmission Date: 20071010
  Serious: Yes (Other)
  Sender: FDA-Public Use
  Company Number: US-ELI_LILLY_AND_COMPANY-USA050495964

PATIENT
  Age: 64 Year
  Sex: Female
  Weight: 59.909 kg

DRUGS (3)
  1. FORTEO [Suspect]
     Indication: OSTEOPOROSIS
     Dosage: 20 UG, EACH EVENING
     Route: 058
     Dates: start: 20050412, end: 20070301
  2. NITROGLYCERIN [Concomitant]
     Indication: MUSCLE SPASMS
     Dosage: UNK, UNKNOWN
  3. EVISTA [Suspect]

REACTIONS (14)
  - ASTHENIA [None]
  - BONE PAIN [None]
  - DYSPHAGIA [None]
  - FATIGUE [None]
  - HEPATIC CYST [None]
  - INSOMNIA [None]
  - MALNUTRITION [None]
  - MUSCLE SPASMS [None]
  - ODYNOPHAGIA [None]
  - OESOPHAGEAL DISORDER [None]
  - POST PROCEDURAL HAEMORRHAGE [None]
  - PROCEDURAL PAIN [None]
  - REGURGITATION [None]
  - WEIGHT DECREASED [None]
